FAERS Safety Report 25708545 (Version 3)
Quarter: 2025Q3

REPORT INFORMATION
  Report Type: Report from Study
  Country: US (occurrence: US)
  Receive Date: 20250821
  Receipt Date: 20250924
  Transmission Date: 20251021
  Serious: No
  Sender: ACADIA PHARMACEUTICALS
  Company Number: US-ACADIA PHARMACEUTICALS INC.-ACA-2025-PIM-009315

PATIENT
  Age: 61 Year
  Sex: Female

DRUGS (2)
  1. NUPLAZID [Suspect]
     Active Substance: PIMAVANSERIN TARTRATE
     Indication: Parkinson^s disease psychosis
     Dosage: 34 MILLIGRAM, QD
     Route: 048
     Dates: start: 20250801, end: 20250829
  2. OMNIPAQUE [Suspect]
     Active Substance: IOHEXOL
     Indication: Cerebrovascular accident
     Route: 065

REACTIONS (5)
  - Adverse drug reaction [Unknown]
  - Contrast media allergy [Unknown]
  - Nightmare [Unknown]
  - Insomnia [Unknown]
  - Headache [Unknown]

NARRATIVE: CASE EVENT DATE: 20250802
